FAERS Safety Report 8140847-1 (Version None)
Quarter: 2012Q1

REPORT INFORMATION
  Report Type: 
  Country: None (occurrence: None)
  Receive Date: 20120216
  Receipt Date: 20120208
  Transmission Date: 20120608
  Serious: Yes (Other)
  Sender: FDA-Public Use
  Company Number: SE-JNJFOC-20120204518

PATIENT
  Sex: Female

DRUGS (1)
  1. RISPERDAL [Suspect]
     Indication: PSYCHOTIC DISORDER
     Route: 065

REACTIONS (4)
  - DEREALISATION [None]
  - AMNESIA [None]
  - APATHY [None]
  - EMOTIONAL DISORDER [None]
